FAERS Safety Report 22348882 (Version 5)
Quarter: 2024Q1

REPORT INFORMATION
  Report Type: Spontaneous
  Country: CN (occurrence: CN)
  Receive Date: 20230522
  Receipt Date: 20240111
  Transmission Date: 20240410
  Serious: Yes (Hospitalization, Other)
  Sender: FDA-Public Use
  Company Number: CN-002147023-NVSC2023CN113202

PATIENT
  Age: 83 Year
  Sex: Female

DRUGS (2)
  1. RUXOLITINIB [Suspect]
     Active Substance: RUXOLITINIB
     Indication: Myelofibrosis
     Dosage: UNK (2 TABLETS A DAY)
     Route: 048
  2. EXJADE [Suspect]
     Active Substance: DEFERASIROX
     Indication: Iron overload
     Dosage: UNK, (ONE YEAR AGO)
     Route: 065

REACTIONS (8)
  - Anaemia [Not Recovered/Not Resolved]
  - Haemoglobin increased [Not Recovered/Not Resolved]
  - Myelosuppression [Not Recovered/Not Resolved]
  - Epilepsy [Unknown]
  - Iron overload [Not Recovered/Not Resolved]
  - Tinea infection [Not Recovered/Not Resolved]
  - Haemoglobin decreased [Not Recovered/Not Resolved]
  - Product administration error [Unknown]
